FAERS Safety Report 22400240 (Version 1)
Quarter: 2023Q2

REPORT INFORMATION
  Report Type: Spontaneous
  Country: US (occurrence: None)
  Receive Date: 20230601
  Receipt Date: 20230601
  Transmission Date: 20230721
  Serious: Yes (Other)
  Sender: FDA-Public Use
  Company Number: None

PATIENT
  Age: 62 Year
  Sex: Female
  Weight: 60.75 kg

DRUGS (4)
  1. AZELASTINE [Suspect]
     Active Substance: AZELASTINE
     Indication: Rhinitis allergic
     Dosage: OTHER QUANTITY : 1 SPRAY(S);?FREQUENCY : TWICE A DAY;?
     Route: 055
  2. CURCUMIN [Concomitant]
     Active Substance: CURCUMIN
  3. PROLEVE [Concomitant]
  4. CANNABIDIOL [Concomitant]
     Active Substance: CANNABIDIOL

REACTIONS (6)
  - Dizziness [None]
  - Cognitive disorder [None]
  - Headache [None]
  - Sneezing [None]
  - Memory impairment [None]
  - Irritability [None]

NARRATIVE: CASE EVENT DATE: 20230502
